FAERS Safety Report 7912752-4 (Version None)
Quarter: 2011Q4

REPORT INFORMATION
  Report Type: 
  Country: None (occurrence: None)
  Receive Date: 20111114
  Receipt Date: 20111107
  Transmission Date: 20120403
  Serious: Yes (Death, Hospitalization)
  Sender: FDA-Public Use
  Company Number: NL-TEVA-308546ISR

PATIENT
  Age: 61 Year
  Sex: Male

DRUGS (6)
  1. MORPHINE [Suspect]
     Dosage: 7 MG/H
     Route: 042
  2. MORPHINE [Suspect]
     Dosage: 3.5 MG/H
     Route: 042
  3. TRAMADOL HCL [Concomitant]
  4. MORPHINE [Suspect]
     Indication: SICKLE CELL ANAEMIA WITH CRISIS
     Dosage: EVERY 4-8 HOURS
     Route: 058
  5. MORPHINE [Suspect]
     Dosage: 5 MG/H
     Route: 042
  6. MORPHINE [Suspect]
     Route: 040

REACTIONS (2)
  - CARDIO-RESPIRATORY ARREST [None]
  - TOXICITY TO VARIOUS AGENTS [None]
